FAERS Safety Report 16079202 (Version 3)
Quarter: 2019Q2

REPORT INFORMATION
  Report Type: Spontaneous
  Country: US (occurrence: US)
  Receive Date: 20190315
  Receipt Date: 20190523
  Transmission Date: 20190711
  Serious: Yes (Life-Threatening, Hospitalization)
  Sender: FDA-Public Use
  Company Number: PHEH2019US011130

PATIENT
  Sex: Female

DRUGS (1)
  1. SIMBRINZA [Suspect]
     Active Substance: BRIMONIDINE TARTRATE\BRINZOLAMIDE
     Indication: PRODUCT USED FOR UNKNOWN INDICATION
     Route: 047

REACTIONS (8)
  - Blood pressure decreased [Unknown]
  - Wrong technique in product usage process [Unknown]
  - Fall [Unknown]
  - Gait disturbance [Unknown]
  - Cerebrovascular disorder [Unknown]
  - Visual impairment [Recovered/Resolved]
  - Feeling abnormal [Unknown]
  - Headache [Unknown]
